FAERS Safety Report 25338262 (Version 6)
Quarter: 2025Q4

REPORT INFORMATION
  Report Type: Spontaneous
  Country: US (occurrence: US)
  Receive Date: 20250520
  Receipt Date: 20251127
  Transmission Date: 20260117
  Serious: Yes (Death, Hospitalization)
  Sender: ASTELLAS
  Company Number: US-ASTELLAS-2025-AER-027303

PATIENT
  Age: 65 Year
  Sex: Male

DRUGS (25)
  1. PADCEV [Suspect]
     Active Substance: ENFORTUMAB VEDOTIN-EJFV
     Indication: Bladder cancer
     Dosage: D1,8,15 -Q28D
     Route: 042
     Dates: start: 20240417, end: 20240417
  2. PADCEV [Suspect]
     Active Substance: ENFORTUMAB VEDOTIN-EJFV
     Dosage: D1,8,15 -Q28D
     Route: 042
     Dates: start: 20240423, end: 20240423
  3. FLOMAX [Concomitant]
     Active Substance: TAMSULOSIN HYDROCHLORIDE
     Indication: Product used for unknown indication
     Route: 065
  4. PROCTOCORT [Concomitant]
     Active Substance: HYDROCORTISONE
     Indication: Product used for unknown indication
     Dosage: APPLY TO AFFECTED AREA TWICE A DAY QUANTITY: 28.4 G
     Route: 065
     Dates: start: 20230511, end: 20240501
  5. EMLA [Concomitant]
     Active Substance: LIDOCAINE\PRILOCAINE
     Indication: Product used for unknown indication
     Dosage: APPLY TO AFFECTED AREA AS NEEDED AS DIRECTED
     Route: 065
     Dates: start: 20230626, end: 20240501
  6. PROSCAR [Concomitant]
     Active Substance: FINASTERIDE
     Indication: Product used for unknown indication
     Route: 048
     Dates: start: 20230918, end: 20240501
  7. CELEXA [Concomitant]
     Active Substance: CITALOPRAM HYDROBROMIDE
     Indication: Product used for unknown indication
     Dosage: EVERY AFTERNOON
     Route: 048
     Dates: start: 20231211, end: 20240501
  8. HYZAAR [Concomitant]
     Active Substance: HYDROCHLOROTHIAZIDE\LOSARTAN POTASSIUM
     Indication: Product used for unknown indication
     Dosage: 50-12.5 MG PER TABLET, TAKE 1 TABLET BY MOUTH ONCE DAILY
     Route: 048
     Dates: start: 20231211, end: 20240501
  9. ZOFRAN ODT [Concomitant]
     Active Substance: ONDANSETRON HYDROCHLORIDE
     Indication: Nausea
     Dosage: DISINTEGRATING TABLET; TAKE 1 TABLET BY MOUTH EVERY 8 HOURS AS NEEDED
     Route: 048
     Dates: start: 20231228, end: 20240501
  10. ZOFRAN ODT [Concomitant]
     Active Substance: ONDANSETRON HYDROCHLORIDE
     Indication: Vomiting
  11. PHENERGAN [Concomitant]
     Active Substance: PROMETHAZINE HYDROCHLORIDE
     Indication: Nausea
     Dosage: TAKE 10-20 ML BY MOUTH FOUR TIMES A DAY AS NEEDED. USE IF ZOFRAN OR ALOXI NOT WORKING
     Route: 048
     Dates: start: 20231228, end: 20240501
  12. PHENERGAN [Concomitant]
     Active Substance: PROMETHAZINE HYDROCHLORIDE
     Indication: Vomiting
  13. ELIQUIS [Concomitant]
     Active Substance: APIXABAN
     Indication: Product used for unknown indication
     Dosage: \
     Route: 048
     Dates: start: 20231228, end: 20240501
  14. POTASSIUM CHLORIDE [Concomitant]
     Active Substance: POTASSIUM CHLORIDE
     Indication: Product used for unknown indication
     Dosage: 20 MEQ/15 ML SOLUTION
     Route: 048
     Dates: start: 20230214, end: 20240428
  15. PEPCID [Concomitant]
     Active Substance: FAMOTIDINE
     Indication: Product used for unknown indication
     Dosage: AT BEDTIME
     Route: 048
  16. B12 ACTIVE ORAL [Concomitant]
     Indication: Product used for unknown indication
     Dosage: TAKE 1 TABLET BY MOUTH ONCE DAILY
     Route: 048
     Dates: end: 20240428
  17. HERBALS\TURMERIC [Concomitant]
     Active Substance: HERBALS\TURMERIC
     Indication: Product used for unknown indication
     Route: 048
     Dates: end: 20240428
  18. ZINC-15 [Concomitant]
     Indication: Product used for unknown indication
     Route: 048
     Dates: end: 20240428
  19. BALVERSA [Concomitant]
     Active Substance: ERDAFITINIB
     Indication: Transitional cell carcinoma metastatic
     Dosage: 2X 4 MG TABLET
     Route: 048
     Dates: start: 20240110, end: 20240209
  20. BALVERSA [Concomitant]
     Active Substance: ERDAFITINIB
     Dosage: 3X3 MG TABLET
     Route: 048
     Dates: start: 20240301, end: 20240304
  21. BALVERSA [Concomitant]
     Active Substance: ERDAFITINIB
     Dosage: 2X4 MG TABLET?TAKE 2 TABLETS BY MOUTH ONCE DAILY
     Route: 048
     Dates: start: 20240304, end: 20240428
  22. SODIUM CHLORIDE [Concomitant]
     Active Substance: SODIUM CHLORIDE
     Indication: Bladder cancer
     Dosage: HYPOTENSION (TITRATE TO MAINTAIN SBP GREATER THAN 100)
     Route: 042
     Dates: end: 20240423
  23. BENADRYL [Concomitant]
     Active Substance: DIPHENHYDRAMINE HYDROCHLORIDE
     Indication: Bladder cancer
     Dosage: ADMINISTER PER HYPERSENSITIVITY/ANAPHYLAXIS GRADING IN NURSING COMMUNICATION
     Route: 065
     Dates: end: 20240423
  24. SOLU-CORTEF [Concomitant]
     Active Substance: HYDROCORTISONE SODIUM SUCCINATE
     Indication: Bladder cancer
     Dosage: ADMINISTER PER HYPERSENSITIVITY/ANAPHYLAXIS GRADING IN NURSING COMMUNICATION
     Route: 065
     Dates: end: 20240423
  25. EPINEPHRINE [Concomitant]
     Active Substance: EPINEPHRINE
     Indication: Bladder cancer
     Dosage: 1 MG/ML (1 ML) 0.3 MG INJECTION?ADMINISTER PER HYPERSENSITIVITY/ANAPHYLAXIS GRADING IN NURSING COMMU
     Route: 065
     Dates: end: 20240423

REACTIONS (13)
  - Septic shock [Fatal]
  - Multiple organ dysfunction syndrome [Fatal]
  - Respiratory failure [Unknown]
  - Mental status changes [Unknown]
  - Condition aggravated [Unknown]
  - Hypoxia [Unknown]
  - Hyporesponsive to stimuli [Unknown]
  - SJS-TEN overlap [Unknown]
  - Condition aggravated [Unknown]
  - Shock [Unknown]
  - Condition aggravated [Unknown]
  - Diarrhoea [Unknown]
  - Fatigue [Unknown]

NARRATIVE: CASE EVENT DATE: 20240425
